FAERS Safety Report 9235935 (Version 1)
Quarter: 2013Q1

REPORT INFORMATION
  Report Type: Spontaneous
  Country: US (occurrence: None)
  Receive Date: 20121031
  Receipt Date: 20121031
  Transmission Date: 20140127
  Serious: No
  Sender: FDA-Public Use
  Company Number: PHEH2012US011321

PATIENT
  Age: 60 Year
  Sex: Female

DRUGS (1)
  1. GILENYA [Suspect]
     Indication: MULTIPLE SCLEROSIS
     Dates: start: 20120523

REACTIONS (8)
  - Malaise [None]
  - Fatigue [None]
  - Abdominal pain upper [None]
  - Pain [None]
  - Pyrexia [None]
  - Chills [None]
  - Diarrhoea [None]
  - Viral infection [None]
